FAERS Safety Report 20605126 (Version 2)
Quarter: 2022Q2

REPORT INFORMATION
  Report Type: Report from Study
  Country: CN (occurrence: CN)
  Receive Date: 20220317
  Receipt Date: 20220421
  Transmission Date: 20220721
  Serious: Yes (Other)
  Sender: FDA-Public Use
  Company Number: CN-AstraZeneca-2022A110862

PATIENT

DRUGS (6)
  1. ZOLADEX [Suspect]
     Active Substance: GOSERELIN ACETATE
     Indication: Uterine leiomyoma
     Dosage: 10.8 MG, QD
     Route: 048
     Dates: start: 20220203, end: 20220203
  2. ZOLADEX [Suspect]
     Active Substance: GOSERELIN ACETATE
     Indication: Uterine leiomyoma
     Dosage: UNK
     Route: 065
  3. FERROUS SUCCINATE [Suspect]
     Active Substance: FERROUS SUCCINATE
     Indication: Anaemia
     Dosage: 100 MG, BID
     Route: 048
     Dates: start: 20220203
  4. CALCIUM CARBONATE\CHOLECALCIFEROL [Concomitant]
     Active Substance: CALCIUM CARBONATE\CHOLECALCIFEROL
     Indication: Menopausal symptoms
     Dosage: UNK
     Route: 065
     Dates: start: 20220303
  5. CEFUROXIME AXETIL ZHIJUN [Concomitant]
     Indication: Haemorrhage
     Dosage: 0.5 GRAM
     Route: 048
     Dates: start: 20220304
  6. TRANEXAMIC ACID [Concomitant]
     Active Substance: TRANEXAMIC ACID
     Indication: Haemorrhage
     Dosage: 1.5 GRAM, TID
     Route: 048
     Dates: start: 20220304

REACTIONS (1)
  - Abnormal uterine bleeding [Recovered/Resolved]

NARRATIVE: CASE EVENT DATE: 20220216
